FAERS Safety Report 8804013 (Version 2)
Quarter: 2013Q1

REPORT INFORMATION
  Report Type: Spontaneous
  Country: US (occurrence: US)
  Receive Date: 20120924
  Receipt Date: 20130329
  Transmission Date: 20140127
  Serious: Yes (Hospitalization, Congenital Anomaly)
  Sender: FDA-Public Use
  Company Number: US-GLAXOSMITHKLINE-A0994260A

PATIENT
  Age: 0 Year
  Sex: Female

DRUGS (5)
  1. PAXIL [Suspect]
     Indication: MENTAL DISORDER
     Dosage: 20MG UNKNOWN
     Route: 064
     Dates: start: 20031123, end: 2004
  2. LITHIUM [Concomitant]
     Route: 064
  3. PROZAC [Concomitant]
     Route: 064
  4. PROZAC [Concomitant]
     Route: 064
  5. DEPAKOTE [Concomitant]
     Route: 064

REACTIONS (6)
  - Trisomy 21 [Not Recovered/Not Resolved]
  - Encephalitis [Unknown]
  - Spina bifida occulta [Unknown]
  - Convulsion [Unknown]
  - Velopharyngeal incompetence [Unknown]
  - Foetal exposure during pregnancy [Unknown]
